FAERS Safety Report 10510261 (Version 1)
Quarter: 2014Q4

REPORT INFORMATION
  Report Type: Spontaneous
  Country: US (occurrence: None)
  Receive Date: 20141009
  Receipt Date: 20141009
  Transmission Date: 20150528
  Serious: Yes (Life-Threatening, Hospitalization, Disabling)
  Sender: FDA-Public Use
  Company Number: None

PATIENT
  Age: 80 Year
  Sex: Male
  Weight: 96.16 kg

DRUGS (15)
  1. ATENOLOL. [Concomitant]
     Active Substance: ATENOLOL
  2. OXYGEN CONCENTRATOR [Concomitant]
  3. RIVAROXABAN [Concomitant]
     Active Substance: RIVAROXABAN
  4. NEBULIZER ORAL INHLATIONS SOLUTIONS [Concomitant]
  5. BUDESONIDE INH [Concomitant]
  6. LUMBAR SPINE FUSION [Concomitant]
  7. AMLODIPINE BESYLATE. [Concomitant]
     Active Substance: AMLODIPINE BESYLATE
  8. IPRATROPIUM + ALBUTEROL SULFATE [Concomitant]
  9. AMIODARONE [Suspect]
     Active Substance: AMIODARONE
     Indication: ATRIAL FIBRILLATION
     Dosage: 1 PILL
     Route: 048
     Dates: start: 20121009, end: 20140214
  10. ATORVASTATIN [Concomitant]
     Active Substance: ATORVASTATIN
  11. ZETIA [Concomitant]
     Active Substance: EZETIMIBE
  12. OXYCODONE ACETAMINOPHEN [Concomitant]
     Active Substance: ACETAMINOPHEN\OXYCODONE HYDROCHLORIDE
  13. ST. JUDE CARDIAC PACE MAKER [Concomitant]
  14. METRONIC SPINAL CORD STIMULATOR [Concomitant]
  15. VITAMIN D3 [Concomitant]
     Active Substance: CHOLECALCIFEROL

REACTIONS (1)
  - Respiratory disorder [None]

NARRATIVE: CASE EVENT DATE: 20130823
